FAERS Safety Report 20574352 (Version 1)
Quarter: 2022Q1

REPORT INFORMATION
  Report Type: Report from Study
  Country: AU (occurrence: AU)
  Receive Date: 20220309
  Receipt Date: 20220309
  Transmission Date: 20220424
  Serious: Yes (Other)
  Sender: FDA-Public Use
  Company Number: AU-JNJFOC-20220301188

PATIENT
  Sex: Male

DRUGS (2)
  1. IMBRUVICA [Suspect]
     Active Substance: IBRUTINIB
     Indication: Mantle cell lymphoma recurrent
     Dosage: ACHIVED COMPLETE REMISSION
     Route: 048
     Dates: end: 202004
  2. IMBRUVICA [Suspect]
     Active Substance: IBRUTINIB
     Dosage: ACHIVED COMPLETE REMISSION
     Route: 048
     Dates: end: 202201

REACTIONS (2)
  - Mantle cell lymphoma recurrent [Unknown]
  - Upper gastrointestinal haemorrhage [Unknown]
